FAERS Safety Report 8793105 (Version 2)
Quarter: 2015Q2

REPORT INFORMATION
  Report Type: Report from Study
  Country: US (occurrence: US)
  Receive Date: 20120917
  Receipt Date: 20150619
  Transmission Date: 20150821
  Serious: Yes (Death)
  Sender: FDA-Public Use
  Company Number: US-ROCHE-1127567

PATIENT
  Age: 75 Year
  Sex: Female

DRUGS (58)
  1. 5-FLUOROURACIL [Concomitant]
     Active Substance: FLUOROURACIL
     Route: 042
     Dates: start: 20060814
  2. 5-FLUOROURACIL [Concomitant]
     Active Substance: FLUOROURACIL
     Route: 042
     Dates: start: 20060911
  3. OXALIPLATIN. [Concomitant]
     Active Substance: OXALIPLATIN
     Route: 042
     Dates: start: 20060731
  4. OXALIPLATIN. [Concomitant]
     Active Substance: OXALIPLATIN
     Route: 042
     Dates: start: 20060911
  5. ZOFRAN [Concomitant]
     Active Substance: ONDANSETRON HYDROCHLORIDE
     Route: 042
     Dates: start: 20060814
  6. 5-FLUOROURACIL [Concomitant]
     Active Substance: FLUOROURACIL
     Route: 042
     Dates: start: 20060911
  7. LEUCOVORIN [Concomitant]
     Active Substance: LEUCOVORIN
     Route: 042
     Dates: start: 20061113
  8. HEXADROL [Concomitant]
     Active Substance: DEXAMETHASONE
     Route: 042
     Dates: start: 20060828
  9. ZOFRAN [Concomitant]
     Active Substance: ONDANSETRON HYDROCHLORIDE
     Route: 042
     Dates: start: 20061113
  10. 5-FLUOROURACIL [Concomitant]
     Active Substance: FLUOROURACIL
     Route: 042
     Dates: start: 20060731
  11. ARANESP [Concomitant]
     Active Substance: DARBEPOETIN ALFA
     Route: 065
     Dates: start: 20061016
  12. IRINOTECAN [Concomitant]
     Active Substance: IRINOTECAN
  13. HEXADROL [Concomitant]
     Active Substance: DEXAMETHASONE
     Route: 042
     Dates: start: 20060911
  14. HEXADROL [Concomitant]
     Active Substance: DEXAMETHASONE
     Route: 042
     Dates: start: 20061030
  15. HEXADROL [Concomitant]
     Active Substance: DEXAMETHASONE
     Route: 042
     Dates: start: 20061113
  16. ZOFRAN [Concomitant]
     Active Substance: ONDANSETRON HYDROCHLORIDE
     Route: 042
     Dates: start: 20060731
  17. ZOFRAN [Concomitant]
     Active Substance: ONDANSETRON HYDROCHLORIDE
     Route: 042
     Dates: start: 20061127
  18. 5-FLUOROURACIL [Concomitant]
     Active Substance: FLUOROURACIL
     Route: 042
     Dates: start: 20060828
  19. 5-FLUOROURACIL [Concomitant]
     Active Substance: FLUOROURACIL
     Route: 042
     Dates: start: 20061016
  20. 5-FLUOROURACIL [Concomitant]
     Active Substance: FLUOROURACIL
     Route: 042
     Dates: start: 20061030
  21. 5-FLUOROURACIL [Concomitant]
     Active Substance: FLUOROURACIL
     Route: 042
     Dates: start: 20061113
  22. LEUCOVORIN [Concomitant]
     Active Substance: LEUCOVORIN
     Route: 042
     Dates: start: 20060731
  23. OXALIPLATIN. [Concomitant]
     Active Substance: OXALIPLATIN
     Route: 042
     Dates: start: 20060828
  24. ARANESP [Concomitant]
     Active Substance: DARBEPOETIN ALFA
     Route: 065
     Dates: start: 20060911
  25. HEXADROL [Concomitant]
     Active Substance: DEXAMETHASONE
     Route: 042
     Dates: start: 20061016
  26. ZOFRAN [Concomitant]
     Active Substance: ONDANSETRON HYDROCHLORIDE
     Route: 042
     Dates: start: 20060911
  27. ZOFRAN [Concomitant]
     Active Substance: ONDANSETRON HYDROCHLORIDE
     Route: 042
     Dates: start: 20061030
  28. 5-FLUOROURACIL [Concomitant]
     Active Substance: FLUOROURACIL
     Route: 042
     Dates: start: 20061127
  29. LEUCOVORIN [Concomitant]
     Active Substance: LEUCOVORIN
     Route: 042
     Dates: start: 20061127
  30. OXALIPLATIN. [Concomitant]
     Active Substance: OXALIPLATIN
     Route: 042
     Dates: start: 20061016
  31. HEXADROL [Concomitant]
     Active Substance: DEXAMETHASONE
     Route: 042
     Dates: start: 20060731
  32. HEXADROL [Concomitant]
     Active Substance: DEXAMETHASONE
     Route: 042
     Dates: start: 20061127
  33. AVASTIN [Suspect]
     Active Substance: BEVACIZUMAB
     Route: 042
  34. AVASTIN [Suspect]
     Active Substance: BEVACIZUMAB
     Route: 042
  35. 5-FLUOROURACIL [Concomitant]
     Active Substance: FLUOROURACIL
     Route: 042
     Dates: start: 20060731
  36. 5-FLUOROURACIL [Concomitant]
     Active Substance: FLUOROURACIL
     Route: 042
     Dates: start: 20060814
  37. 5-FLUOROURACIL [Concomitant]
     Active Substance: FLUOROURACIL
     Route: 042
     Dates: start: 20061016
  38. LEUCOVORIN [Concomitant]
     Active Substance: LEUCOVORIN
     Route: 042
     Dates: start: 20060828
  39. LEUCOVORIN [Concomitant]
     Active Substance: LEUCOVORIN
     Route: 042
     Dates: start: 20061016
  40. LEUCOVORIN [Concomitant]
     Active Substance: LEUCOVORIN
     Route: 042
     Dates: start: 20061030
  41. OXALIPLATIN. [Concomitant]
     Active Substance: OXALIPLATIN
     Route: 042
     Dates: start: 20060814
  42. AVASTIN [Suspect]
     Active Substance: BEVACIZUMAB
     Indication: GASTRIC CANCER
     Route: 042
     Dates: start: 20060731
  43. AVASTIN [Suspect]
     Active Substance: BEVACIZUMAB
     Route: 042
  44. AVASTIN [Suspect]
     Active Substance: BEVACIZUMAB
     Route: 042
  45. 5-FLUOROURACIL [Concomitant]
     Active Substance: FLUOROURACIL
     Route: 042
     Dates: start: 20060828
  46. 5-FLUOROURACIL [Concomitant]
     Active Substance: FLUOROURACIL
     Route: 042
     Dates: start: 20061030
  47. 5-FLUOROURACIL [Concomitant]
     Active Substance: FLUOROURACIL
     Route: 042
     Dates: start: 20061113
  48. LEUCOVORIN [Concomitant]
     Active Substance: LEUCOVORIN
     Route: 042
     Dates: start: 20060911
  49. ARANESP [Concomitant]
     Active Substance: DARBEPOETIN ALFA
     Route: 065
     Dates: start: 20061030
  50. ZOFRAN [Concomitant]
     Active Substance: ONDANSETRON HYDROCHLORIDE
     Route: 042
     Dates: start: 20061016
  51. BENADRYL [Concomitant]
     Active Substance: DIPHENHYDRAMINE HYDROCHLORIDE
     Route: 065
     Dates: start: 20061113
  52. AVASTIN [Suspect]
     Active Substance: BEVACIZUMAB
     Route: 042
  53. AVASTIN [Suspect]
     Active Substance: BEVACIZUMAB
     Route: 042
  54. 5-FLUOROURACIL [Concomitant]
     Active Substance: FLUOROURACIL
     Route: 042
     Dates: start: 20061127
  55. LEUCOVORIN [Concomitant]
     Active Substance: LEUCOVORIN
     Route: 042
     Dates: start: 20060814
  56. ARANESP [Concomitant]
     Active Substance: DARBEPOETIN ALFA
     Route: 065
     Dates: start: 20060828
  57. HEXADROL [Concomitant]
     Active Substance: DEXAMETHASONE
     Route: 042
     Dates: start: 20060814
  58. ZOFRAN [Concomitant]
     Active Substance: ONDANSETRON HYDROCHLORIDE
     Route: 042
     Dates: start: 20060828

REACTIONS (3)
  - Death [Fatal]
  - Paraesthesia [Unknown]
  - Fatigue [Unknown]

NARRATIVE: CASE EVENT DATE: 20070219
